FAERS Safety Report 13671648 (Version 1)
Quarter: 2017Q2

REPORT INFORMATION
  Report Type: Spontaneous
  Country: US (occurrence: US)
  Receive Date: 20170620
  Receipt Date: 20170620
  Transmission Date: 20170830
  Serious: No
  Sender: FDA-Public Use
  Company Number: US-ROCHE-1383954

PATIENT
  Sex: Female

DRUGS (14)
  1. CLARITIN [Concomitant]
     Active Substance: LORATADINE
  2. IMODIUM [Concomitant]
     Active Substance: LOPERAMIDE HYDROCHLORIDE
  3. LEVOTHYROXINE. [Concomitant]
     Active Substance: LEVOTHYROXINE
  4. PLAVIX [Concomitant]
     Active Substance: CLOPIDOGREL BISULFATE
  5. FISH OIL [Concomitant]
     Active Substance: FISH OIL
  6. VITAMIN B3 [Concomitant]
     Active Substance: NIACIN
  7. ONDANSETRON [Concomitant]
     Active Substance: ONDANSETRON
  8. PROZAC [Concomitant]
     Active Substance: FLUOXETINE HYDROCHLORIDE
  9. XELODA [Suspect]
     Active Substance: CAPECITABINE
     Indication: COLON CANCER
     Route: 048
     Dates: start: 20120914
  10. VITAMIN C [Concomitant]
     Active Substance: ASCORBIC ACID
  11. SERTRALINE [Concomitant]
     Active Substance: SERTRALINE HYDROCHLORIDE
  12. KLOR-CON [Concomitant]
     Active Substance: POTASSIUM CHLORIDE
  13. LOSARTAN. [Concomitant]
     Active Substance: LOSARTAN
  14. FUROSEMIDE. [Concomitant]
     Active Substance: FUROSEMIDE

REACTIONS (2)
  - Gastric disorder [Unknown]
  - Drug dose omission [Unknown]
